FAERS Safety Report 9031308 (Version 1)
Quarter: 2013Q1

REPORT INFORMATION
  Report Type: Spontaneous
  Country: CR (occurrence: CR)
  Receive Date: 20130124
  Receipt Date: 20130124
  Transmission Date: 20140127
  Serious: Yes (Hospitalization)
  Sender: FDA-Public Use
  Company Number: CR-PFIZER INC-2013030384

PATIENT
  Age: 53 Year
  Sex: Female

DRUGS (1)
  1. LIPITOR [Suspect]
     Dosage: 80 MG, 1X/DAY
     Route: 048
     Dates: start: 20121113

REACTIONS (5)
  - Neck pain [Unknown]
  - Headache [Unknown]
  - Musculoskeletal pain [Unknown]
  - Nausea [Unknown]
  - Muscle spasms [Unknown]
